FAERS Safety Report 21043413 (Version 3)
Quarter: 2022Q3

REPORT INFORMATION
  Report Type: Spontaneous
  Country: IR (occurrence: IR)
  Receive Date: 20220705
  Receipt Date: 20220801
  Transmission Date: 20221027
  Serious: Yes (Life-Threatening, Other)
  Sender: FDA-Public Use
  Company Number: IR-PFIZER INC-PV202200015060

PATIENT
  Age: 4 Year
  Sex: Male

DRUGS (1)
  1. CYTARABINE [Suspect]
     Active Substance: CYTARABINE
     Indication: Acute lymphocytic leukaemia
     Dosage: UNK
     Route: 037

REACTIONS (4)
  - Incorrect route of product administration [Unknown]
  - Brain death [Unknown]
  - Cardio-respiratory arrest [Unknown]
  - Guillain-Barre syndrome [Unknown]
